FAERS Safety Report 9749847 (Version 5)
Quarter: 2014Q2

REPORT INFORMATION
  Report Type: Report from Study
  Country: JP (occurrence: JP)
  Receive Date: 20131212
  Receipt Date: 20140617
  Transmission Date: 20141212
  Serious: Yes (Hospitalization, Other)
  Sender: FDA-Public Use
  Company Number: JP-JNJFOC-20131207605

PATIENT
  Age: 63 Year
  Sex: Male
  Weight: 73 kg

DRUGS (28)
  1. STELARA [Suspect]
     Indication: PSORIATIC ARTHROPATHY
     Route: 058
     Dates: start: 20130328, end: 20130328
  2. STELARA [Suspect]
     Indication: PSORIATIC ARTHROPATHY
     Route: 058
     Dates: start: 20130704, end: 20130704
  3. STELARA [Suspect]
     Indication: PSORIATIC ARTHROPATHY
     Route: 058
     Dates: start: 20121018, end: 20121018
  4. STELARA [Suspect]
     Indication: PSORIATIC ARTHROPATHY
     Route: 058
     Dates: start: 20120629, end: 20120629
  5. STELARA [Suspect]
     Indication: PSORIATIC ARTHROPATHY
     Route: 058
     Dates: start: 20120726, end: 20120726
  6. STELARA [Suspect]
     Indication: PSORIATIC ARTHROPATHY
     Route: 058
     Dates: start: 20130110, end: 20130110
  7. BAYASPIRIN [Concomitant]
     Indication: GASTRIC ULCER
     Route: 048
  8. BLOPRESS [Concomitant]
     Indication: HYPERTENSION
     Route: 048
  9. CELECOX [Concomitant]
     Indication: PSORIATIC ARTHROPATHY
     Route: 048
     Dates: end: 20121109
  10. SELBEX [Concomitant]
     Indication: PROPHYLAXIS
     Route: 048
     Dates: end: 20121109
  11. ALLELOCK [Concomitant]
     Indication: PSORIATIC ARTHROPATHY
     Route: 048
     Dates: end: 20121109
  12. OMEPRAL [Concomitant]
     Indication: GASTRIC ULCER
     Route: 048
     Dates: end: 20121017
  13. ANTEBATE [Concomitant]
     Indication: PSORIATIC ARTHROPATHY
     Route: 061
  14. ANTEBATE [Concomitant]
     Indication: PSORIATIC ARTHROPATHY
     Route: 061
  15. MYSLEE [Concomitant]
     Indication: INSOMNIA
     Route: 048
     Dates: end: 20120701
  16. ROHYPNOL [Concomitant]
     Indication: INSOMNIA
     Route: 048
     Dates: end: 20120701
  17. NEORAL [Concomitant]
     Indication: PSORIATIC ARTHROPATHY
     Route: 048
     Dates: start: 20120201, end: 20120509
  18. NEORAL [Concomitant]
     Indication: PSORIATIC ARTHROPATHY
     Route: 048
     Dates: start: 20120115, end: 20120131
  19. NEORAL [Concomitant]
     Indication: PSORIATIC ARTHROPATHY
     Route: 048
     Dates: start: 20120510, end: 20120516
  20. NEORAL [Concomitant]
     Indication: PSORIATIC ARTHROPATHY
     Route: 048
     Dates: end: 20120720
  21. OXAROL [Concomitant]
     Indication: PSORIATIC ARTHROPATHY
     Route: 061
  22. GASTER [Concomitant]
     Indication: GASTRIC ULCER
     Route: 048
     Dates: start: 20121017, end: 20121019
  23. GASTER [Concomitant]
     Indication: GASTRIC ULCER
     Route: 048
     Dates: start: 20121109
  24. PREDONINE [Concomitant]
     Indication: PROPHYLAXIS
     Route: 048
     Dates: start: 20121017, end: 20121019
  25. PREDONINE [Concomitant]
     Indication: PROPHYLAXIS
     Route: 048
     Dates: start: 20130110, end: 20130329
  26. PREDONINE [Concomitant]
     Indication: PROPHYLAXIS
     Route: 048
     Dates: start: 20130703
  27. RHYTHMY [Concomitant]
     Indication: INSOMNIA
     Route: 048
     Dates: start: 20121101
  28. CEFZON [Concomitant]
     Indication: INFECTED DERMAL CYST
     Route: 048
     Dates: start: 20130110, end: 20130116

REACTIONS (3)
  - Infected dermal cyst [Recovering/Resolving]
  - Acute coronary syndrome [Recovered/Resolved]
  - Cervical myelopathy [Recovering/Resolving]
